FAERS Safety Report 6208671-4 (Version None)
Quarter: 2009Q2

REPORT INFORMATION
  Report Type: 
  Country: None (occurrence: None)
  Receive Date: 20090529
  Receipt Date: 20090528
  Transmission Date: 20091009
  Serious: Yes (Hospitalization)
  Sender: FDA-Public Use
  Company Number: IT-WYE-G03646709

PATIENT
  Sex: Male

DRUGS (18)
  1. TYGACIL [Suspect]
     Indication: BRONCHOPNEUMONIA
     Route: 042
     Dates: start: 20090323, end: 20090403
  2. MERREM [Concomitant]
     Indication: BRONCHOPNEUMONIA
     Route: 042
     Dates: start: 20090313, end: 20090317
  3. TARGOCID [Concomitant]
     Indication: BRONCHOPNEUMONIA
     Route: 042
     Dates: start: 20090313, end: 20090322
  4. ZITHROMAX [Concomitant]
     Indication: BRONCHOPNEUMONIA
     Route: 042
     Dates: start: 20090317, end: 20090323
  5. LEVOFLOXACIN [Concomitant]
     Route: 042
     Dates: start: 20090317, end: 20090329
  6. GLAZIDIM [Concomitant]
     Indication: BRONCHOPNEUMONIA
     Route: 042
     Dates: start: 20090313, end: 20090418
  7. ROCEPHIN [Concomitant]
     Indication: BRONCHOPNEUMONIA
     Route: 042
     Dates: start: 20090228, end: 20090310
  8. SPORANOX [Concomitant]
     Indication: BRONCHOPNEUMONIA
     Route: 048
     Dates: start: 20090313, end: 20090320
  9. VFEND [Concomitant]
     Dosage: NOT PROVIDED
     Dates: start: 20090321, end: 20090406
  10. FUNGILIN [Concomitant]
     Route: 048
     Dates: start: 20090407, end: 20090418
  11. VASERETIC [Concomitant]
     Route: 048
     Dates: start: 20070215
  12. NITRODERM [Concomitant]
     Dosage: 15 MG
     Dates: start: 20070215
  13. NORVASC [Concomitant]
     Dates: start: 20070215
  14. ZYLORIC [Concomitant]
     Dosage: 300 MG
     Dates: start: 20070215
  15. SINVACOR [Concomitant]
     Dosage: 20 MG
     Dates: start: 20070215
  16. MINIAS [Concomitant]
     Dosage: 10 DROPS
     Dates: start: 20070215
  17. ASPIRIN [Concomitant]
     Dosage: 1 TABLET
     Dates: start: 20070215
  18. TAZOCIN [Concomitant]
     Indication: BRONCHOPNEUMONIA
     Route: 042
     Dates: start: 20090310, end: 20090313

REACTIONS (5)
  - ERYTHEMA [None]
  - LIVER INJURY [None]
  - NAUSEA [None]
  - PITYRIASIS ROSEA [None]
  - TONGUE DISCOLOURATION [None]
